FAERS Safety Report 7432234-6 (Version None)
Quarter: 2011Q2

REPORT INFORMATION
  Report Type: 
  Country: None (occurrence: None)
  Receive Date: 20110422
  Receipt Date: 20110413
  Transmission Date: 20111010
  Serious: Yes (Other)
  Sender: FDA-Public Use
  Company Number: US-B.I. PHARMACEUTICALS,INC./RIDGEFIELD-2011-BP-10897BP

PATIENT
  Age: 63 Year
  Sex: Male

DRUGS (11)
  1. HYDROMORPHONE HCL [Concomitant]
     Indication: COLONOSCOPY
     Dates: start: 20110406, end: 20110406
  2. HYDROMORPHONE HCL [Concomitant]
     Indication: ENDOSCOPY
  3. AGGRENOX [Concomitant]
     Route: 048
     Dates: start: 20020101
  4. VERSED [Concomitant]
     Indication: COLONOSCOPY
     Dates: start: 20110406, end: 20110406
  5. FENTANYL [Concomitant]
     Indication: COLONOSCOPY
     Dates: start: 20110406, end: 20110406
  6. ZOFRAN [Concomitant]
     Indication: COLONOSCOPY
     Dates: start: 20110406, end: 20110406
  7. MIRAPEX [Suspect]
     Indication: PARKINSON'S DISEASE
     Dosage: 1 MG
     Route: 048
  8. MIRAPEX [Suspect]
     Route: 048
  9. ZOFRAN [Concomitant]
     Indication: ENDOSCOPY
  10. VERSED [Concomitant]
     Indication: ENDOSCOPY
  11. FENTANYL [Concomitant]
     Indication: ENDOSCOPY

REACTIONS (10)
  - CONVULSION [None]
  - WEIGHT DECREASED [None]
  - MANIA [None]
  - CHILLS [None]
  - HALLUCINATION [None]
  - INSOMNIA [None]
  - RESTLESS LEGS SYNDROME [None]
  - CHOKING SENSATION [None]
  - DAYDREAMING [None]
  - PARKINSON'S DISEASE [None]
